FAERS Safety Report 10566853 (Version 1)
Quarter: 2014Q4

REPORT INFORMATION
  Report Type: Spontaneous
  Country: JP (occurrence: JP)
  Receive Date: 20141105
  Receipt Date: 20141105
  Transmission Date: 20150529
  Serious: Yes (Death)
  Sender: FDA-Public Use
  Company Number: JP-MALLINCKRODT-T201403951

PATIENT
  Age: 40 Year
  Sex: Female
  Weight: 43 kg

DRUGS (28)
  1. ABSTRAL [Concomitant]
     Active Substance: FENTANYL CITRATE
     Dosage: 100 ?G, PRN
     Route: 060
     Dates: start: 20140316, end: 20140318
  2. VEEN D [Concomitant]
     Active Substance: CALCIUM CHLORIDE\DEXTROSE\POTASSIUM CHLORIDE\SODIUM ACETATE\SODIUM CHLORIDE
     Dosage: 500 ML, UNK
     Route: 051
     Dates: start: 20140222, end: 20140319
  3. MORPHINE [Concomitant]
     Active Substance: MORPHINE
     Dosage: 5 MG/ML, PRN
     Route: 042
     Dates: start: 20140227
  4. PARIET [Concomitant]
     Active Substance: RABEPRAZOLE SODIUM
     Dosage: 10 MG, UNK
     Route: 048
     Dates: start: 20130828, end: 20140318
  5. CALCIUM LACTATE [Concomitant]
     Active Substance: CALCIUM LACTATE
     Dosage: 1000 MG, UNK
     Route: 048
     Dates: start: 20131129, end: 20140318
  6. WARKMIN [Concomitant]
     Active Substance: ALFACALCIDOL
     Dosage: 1 ?G, UNK
     Route: 048
     Dates: start: 20131129, end: 20140318
  7. GLYCEOL [Concomitant]
     Active Substance: GLYCERIN
     Dosage: 1 DF, UNK
     Route: 051
     Dates: start: 20140314, end: 20140319
  8. RAMOSETRON HYDROCHLORIDE [Concomitant]
     Active Substance: RAMOSETRON HYDROCHLORIDE
     Dosage: 0.3 MG, UNK
     Route: 051
     Dates: start: 20140307, end: 20140307
  9. METHOTREXATE [Concomitant]
     Active Substance: METHOTREXATE
     Dosage: 5 MG, UNK
     Route: 028
     Dates: start: 20140307, end: 20140307
  10. LYRICA [Concomitant]
     Active Substance: PREGABALIN
     Dosage: 150 MG, UNK
     Route: 048
     Dates: start: 20131004, end: 20140318
  11. CYLOCIDE [Concomitant]
     Active Substance: CYTARABINE
     Dosage: 20 MG, UNK
     Route: 028
     Dates: start: 20140307, end: 20140307
  12. VOLTAREN [Concomitant]
     Active Substance: DICLOFENAC SODIUM
     Dosage: 150 MG, UNK
     Route: 048
     Dates: start: 20131115, end: 20140318
  13. RINDERON V [Concomitant]
     Active Substance: BETAMETHASONE VALERATE
     Dosage: 4 MG, UNK
     Route: 051
     Dates: start: 20140221, end: 20140302
  14. RAMOSETRON HYDROCHLORIDE [Concomitant]
     Active Substance: RAMOSETRON HYDROCHLORIDE
     Dosage: 0.3 MG, UNK
     Route: 051
     Dates: start: 20140305, end: 20140305
  15. CYLOCIDE [Concomitant]
     Active Substance: CYTARABINE
     Dosage: 20 MG, UNK
     Route: 028
     Dates: start: 20140305, end: 20140305
  16. KYTRIL [Concomitant]
     Active Substance: GRANISETRON HYDROCHLORIDE
     Dosage: 3 MG, UNK
     Route: 051
     Dates: start: 20140309, end: 20140316
  17. MONILAC [Concomitant]
     Active Substance: LACTULOSE
     Dosage: 2 DF, UNK
     Route: 048
     Dates: start: 20140226, end: 20140318
  18. METHADONE [Suspect]
     Active Substance: METHADONE HYDROCHLORIDE
     Indication: CANCER PAIN
     Dosage: 10 MG, (30 MG DAILY DOSE)
     Route: 048
     Dates: start: 20140227, end: 20140318
  19. MAGLAX [Concomitant]
     Active Substance: MAGNESIUM OXIDE
     Dosage: 1320 MG, UNK
     Route: 048
     Dates: start: 20130828, end: 20140311
  20. LAXOBERON [Concomitant]
     Active Substance: SODIUM PICOSULFATE
     Dosage: 10 GTT, UNK
     Route: 048
     Dates: start: 20140226, end: 20140318
  21. PREDONINE [Concomitant]
     Active Substance: PREDNISOLONE\PREDNISOLONE ACETATE\PREDNISOLONE SODIUM SUCCINATE
     Dosage: 10 MG, UNK
     Route: 028
     Dates: start: 20140305, end: 20140305
  22. NEUTROGIN [Concomitant]
     Active Substance: LENOGRASTIM
     Dosage: 100 ?G, UNK
     Route: 051
     Dates: start: 20140314, end: 20140315
  23. CALONAL [Concomitant]
     Active Substance: ACETAMINOPHEN
     Dosage: 2400 MG, UNK
     Route: 048
     Dates: start: 20130906, end: 20140318
  24. GLYCEOL [Concomitant]
     Active Substance: GLYCERIN
     Dosage: 1 DF, UNK
     Route: 051
     Dates: start: 20140222, end: 20140227
  25. METHOTREXATE [Concomitant]
     Active Substance: METHOTREXATE
     Dosage: 5 MG, UNK
     Route: 028
     Dates: start: 20140305, end: 20140305
  26. KETALAR [Concomitant]
     Active Substance: KETAMINE HYDROCHLORIDE
     Dosage: 1 MG/ML, PRN
     Route: 042
     Dates: start: 20140227
  27. LIDOCAINE. [Concomitant]
     Active Substance: LIDOCAINE
     Dosage: 7.8 MG/ML, PRN
     Route: 042
     Dates: start: 20140227
  28. PREDONINE [Concomitant]
     Active Substance: PREDNISOLONE\PREDNISOLONE ACETATE\PREDNISOLONE SODIUM SUCCINATE
     Dosage: 10 MG, UNK
     Route: 028
     Dates: start: 20140307, end: 20140307

REACTIONS (1)
  - Breast cancer [Fatal]
